FAERS Safety Report 4689600-1 (Version None)
Quarter: 2005Q2

REPORT INFORMATION
  Report Type: 
  Country: None (occurrence: None)
  Receive Date: 20050608
  Receipt Date: 20050405
  Transmission Date: 20051028
  Serious: No
  Sender: FDA-Public Use
  Company Number: 2005-BP-05609BP

PATIENT
  Sex: Male

DRUGS (13)
  1. SPIRIVA [Suspect]
     Indication: CHRONIC OBSTRUCTIVE PULMONARY DISEASE
     Dosage: 18 MCG (18 MCG, QD), IH
     Route: 055
     Dates: start: 20050302
  2. COMBIVENT (COMBIVENT/GFR/) [Concomitant]
  3. THEOPHYLLINE [Concomitant]
  4. POTASSIUM CHLORIDE [Concomitant]
  5. NIITROGLYCERINE SR [Concomitant]
  6. SAW PALMETTO (SERENOA REPENS) [Concomitant]
  7. REDYEAST RICE [Concomitant]
  8. LISINOPRIL [Concomitant]
  9. GLUCOSAMINE [Concomitant]
  10. DILTIAZEM HCL (DILTIAZEM) [Concomitant]
  11. ASPIRIN [Concomitant]
  12. BUDESONIDE [Concomitant]
  13. OXYGEN [Concomitant]

REACTIONS (10)
  - ASTHENIA [None]
  - BONE PAIN [None]
  - COUGH [None]
  - DYSPNOEA [None]
  - DYSURIA [None]
  - HAEMORRHAGE [None]
  - HEART RATE INCREASED [None]
  - HOT FLUSH [None]
  - THERAPEUTIC RESPONSE DECREASED [None]
  - VISION BLURRED [None]
